FAERS Safety Report 15659698 (Version 1)
Quarter: 2018Q4

REPORT INFORMATION
  Report Type: Report from Study
  Country: CN (occurrence: CN)
  Receive Date: 20181127
  Receipt Date: 20181127
  Transmission Date: 20190205
  Serious: Yes (Other)
  Sender: FDA-Public Use
  Company Number: CN-ROCHE-2219415

PATIENT

DRUGS (2)
  1. NIMUSTINE [Suspect]
     Active Substance: NIMUSTINE
     Indication: GLIOMA
     Route: 041
  2. BEVACIZUMAB. [Suspect]
     Active Substance: BEVACIZUMAB
     Indication: GLIOMA
     Route: 041

REACTIONS (5)
  - Intracranial haematoma [Unknown]
  - Platelet count decreased [Unknown]
  - Fatigue [Unknown]
  - Liver injury [Unknown]
  - Hypertension [Unknown]
